FAERS Safety Report 16889623 (Version 1)
Quarter: 2019Q4

REPORT INFORMATION
  Report Type: Spontaneous
  Country: FR (occurrence: FR)
  Receive Date: 20191007
  Receipt Date: 20191007
  Transmission Date: 20200122
  Serious: Yes (Other)
  Sender: FDA-Public Use
  Company Number: FR-PFIZER INC-2019424942

PATIENT

DRUGS (1)
  1. IBRANCE [Suspect]
     Active Substance: PALBOCICLIB

REACTIONS (1)
  - Hepatocellular injury [Unknown]
